FAERS Safety Report 13211227 (Version 2)
Quarter: 2017Q1

REPORT INFORMATION
  Report Type: Spontaneous
  Country: JP (occurrence: JP)
  Receive Date: 20170209
  Receipt Date: 20170227
  Transmission Date: 20170428
  Serious: Yes (Hospitalization, Other)
  Sender: FDA-Public Use
  Company Number: JP-PFIZER INC-2017056840

PATIENT
  Age: 8 Decade
  Sex: Female

DRUGS (1)
  1. CELECOX [Suspect]
     Active Substance: CELECOXIB
     Indication: BACK PAIN
     Dosage: 200 MG, 1X/DAY
     Route: 048

REACTIONS (2)
  - Small intestine ulcer [Recovered/Resolved]
  - Small intestinal obstruction [Recovering/Resolving]
